FAERS Safety Report 7909293-7 (Version None)
Quarter: 2011Q4

REPORT INFORMATION
  Report Type: 
  Country: None (occurrence: None)
  Receive Date: 20111111
  Receipt Date: 20111031
  Transmission Date: 20120403
  Serious: Yes (Other)
  Sender: FDA-Public Use
  Company Number: BR-ELI_LILLY_AND_COMPANY-BR201111000074

PATIENT
  Sex: Female

DRUGS (1)
  1. HUMALOG [Suspect]
     Indication: TYPE 2 DIABETES MELLITUS
     Dosage: 16 IU, QD
     Route: 065
     Dates: start: 20090401

REACTIONS (4)
  - EYE HAEMORRHAGE [None]
  - HYPERGLYCAEMIA [None]
  - EXPIRED DRUG ADMINISTERED [None]
  - HYPOGLYCAEMIA [None]
